FAERS Safety Report 11324061 (Version 1)
Quarter: 2015Q3

REPORT INFORMATION
  Report Type: Spontaneous
  Country: US (occurrence: US)
  Receive Date: 20150730
  Receipt Date: 20150730
  Transmission Date: 20151125
  Serious: Yes (Other)
  Sender: FDA-Public Use
  Company Number: US-JNJFOC-20150715756

PATIENT
  Sex: Female
  Weight: 72.58 kg

DRUGS (4)
  1. SPORANOX [Suspect]
     Active Substance: ITRACONAZOLE\SODIUM CHLORIDE
     Indication: HISTOPLASMOSIS
     Dosage: 200-400 MG A DAY (CAPSULE STRENGTH 100 MG X 2-4 TIMES A DAY)
     Route: 048
  2. SPORANOX [Suspect]
     Active Substance: ITRACONAZOLE\SODIUM CHLORIDE
     Indication: HISTOPLASMOSIS
     Dosage: 200-400 MG A DAY (CAPSULE STRENGTH 100 MG X 2-4 TIMES A DAY)
     Route: 048
  3. FLEXERIL [Concomitant]
     Active Substance: CYCLOBENZAPRINE HYDROCHLORIDE
     Indication: MUSCLE RELAXANT THERAPY
     Route: 048
  4. COREG [Concomitant]
     Active Substance: CARVEDILOL
     Indication: BLOOD PRESSURE MEASUREMENT
     Route: 048

REACTIONS (10)
  - Hypertension [Unknown]
  - Vomiting [Unknown]
  - Weight increased [Not Recovered/Not Resolved]
  - Pulmonary haemorrhage [Unknown]
  - Pneumonia [Unknown]
  - Thyroid disorder [Unknown]
  - Hearing impaired [Unknown]
  - Diarrhoea [Unknown]
  - Tooth loss [Unknown]
  - Dyspepsia [Unknown]
